FAERS Safety Report 9214960 (Version 1)
Quarter: 2013Q2

REPORT INFORMATION
  Report Type: Spontaneous
  Country: US (occurrence: US)
  Receive Date: 20130405
  Receipt Date: 20130405
  Transmission Date: 20140414
  Serious: Yes (Other)
  Sender: FDA-Public Use
  Company Number: US-ASTRAZENECA-2013SE20745

PATIENT
  Age: 50 Year
  Sex: Male
  Weight: 81.6 kg

DRUGS (3)
  1. CANDESARTAN CILEXETIL\HYDROCHLOROTHIAZIDE [Suspect]
     Indication: HYPERTENSION
     Dosage: 32 + 12.5 MG DAILY GENERIC
     Route: 048
     Dates: start: 201302, end: 20130326
  2. METOPROLOL SUCCINATE EXTENDED-RELEASE [Suspect]
     Indication: HYPERTENSION
     Route: 048
  3. AMLODIPINE BESYLATE [Suspect]
     Route: 065

REACTIONS (7)
  - Extrasystoles [Recovering/Resolving]
  - Myalgia [Recovering/Resolving]
  - Anxiety [Recovering/Resolving]
  - Heart rate increased [Recovering/Resolving]
  - Arrhythmia [Recovering/Resolving]
  - Asthenia [Recovering/Resolving]
  - Blood glucose decreased [Recovering/Resolving]
